FAERS Safety Report 20557683 (Version 1)
Quarter: 2022Q1

REPORT INFORMATION
  Report Type: Spontaneous
  Country: IT (occurrence: IT)
  Receive Date: 20220307
  Receipt Date: 20220307
  Transmission Date: 20220423
  Serious: No
  Sender: FDA-Public Use
  Company Number: IT-LUPIN PHARMACEUTICALS INC.-2022-02864

PATIENT
  Age: 39 Year
  Sex: Male

DRUGS (13)
  1. SERTRALINE [Suspect]
     Active Substance: SERTRALINE HYDROCHLORIDE
     Indication: Major depression
     Dosage: 200 MILLIGRAM
     Route: 065
     Dates: start: 2018
  2. ARIPIPRAZOLE [Suspect]
     Active Substance: ARIPIPRAZOLE
     Indication: Major depression
     Dosage: 5 MILLIGRAM
     Route: 065
     Dates: start: 201905
  3. PAROXETINE [Suspect]
     Active Substance: PAROXETINE
     Indication: Major depression
     Dosage: 40 MILLIGRAM
     Route: 065
     Dates: start: 201910
  4. BUPROPION [Suspect]
     Active Substance: BUPROPION
     Indication: Major depression
     Dosage: 300 MILLIGRAM
     Route: 065
     Dates: start: 201910
  5. OLANZAPINE [Suspect]
     Active Substance: OLANZAPINE
     Indication: Obsessive-compulsive disorder
     Dosage: 5 MILLIGRAM
     Route: 065
     Dates: start: 202001
  6. OLANZAPINE [Suspect]
     Active Substance: OLANZAPINE
     Dosage: UNK MILLIGRAM
     Route: 065
     Dates: start: 202006
  7. LAMOTRIGINE [Suspect]
     Active Substance: LAMOTRIGINE
     Indication: Obsessive-compulsive disorder
     Dosage: 150 MILLIGRAM
     Route: 065
     Dates: start: 202001
  8. LAMOTRIGINE [Suspect]
     Active Substance: LAMOTRIGINE
     Dosage: UNK
     Route: 065
     Dates: start: 202006
  9. VENLAFAXINE [Suspect]
     Active Substance: VENLAFAXINE HYDROCHLORIDE
     Indication: Major depression
     Dosage: 225 MILLIGRAM
     Route: 065
     Dates: start: 202006
  10. RISPERIDONE [Suspect]
     Active Substance: RISPERIDONE
     Indication: Major depression
     Dosage: 2 MILLIGRAM
     Route: 065
  11. ESKETAMINE [Concomitant]
     Active Substance: ESKETAMINE
     Indication: Obsessive-compulsive disorder
     Dosage: 56 MILLIGRAM, FOR FIRST MONTH
     Route: 045
  12. ESKETAMINE [Concomitant]
     Active Substance: ESKETAMINE
     Dosage: 56 MILLIGRAM, IN THE SECOND MONTH
     Route: 045
  13. ESKETAMINE [Concomitant]
     Active Substance: ESKETAMINE
     Dosage: 56 MILLIGRAM, IN THE THIRD AND SUBSEQUENT MONTHS
     Route: 045

REACTIONS (5)
  - Drug ineffective [Unknown]
  - Therapy partial responder [Unknown]
  - Drug ineffective for unapproved indication [Unknown]
  - Cognitive disorder [Unknown]
  - Off label use [Unknown]
